FAERS Safety Report 19820511 (Version 2)
Quarter: 2021Q4

REPORT INFORMATION
  Report Type: Spontaneous
  Country: FR (occurrence: FR)
  Receive Date: 20210913
  Receipt Date: 20211031
  Transmission Date: 20220303
  Serious: Yes (Hospitalization)
  Sender: FDA-Public Use
  Company Number: None

PATIENT
  Age: 61 Year
  Sex: Male
  Weight: 134 kg

DRUGS (1)
  1. TOCILIZUMAB [Suspect]
     Active Substance: TOCILIZUMAB
     Indication: COVID-19
     Dosage: STRENGTH: 20MG/ML
     Route: 041
     Dates: start: 20210819, end: 20210821

REACTIONS (1)
  - Bicytopenia [Recovering/Resolving]

NARRATIVE: CASE EVENT DATE: 20210908
